FAERS Safety Report 6507049-3 (Version None)
Quarter: 2009Q4

REPORT INFORMATION
  Report Type: 
  Country: None (occurrence: None)
  Receive Date: 20091221
  Receipt Date: 20091207
  Transmission Date: 20100525
  Serious: Yes (Other)
  Sender: FDA-Public Use
  Company Number: PHHY2009US54177

PATIENT
  Sex: Female

DRUGS (10)
  1. RECLAST [Suspect]
     Dosage: UNK
     Dates: start: 20091001
  2. OMEPRAZOLE [Concomitant]
     Dosage: 20 MG, BID
  3. VITAMIN D [Concomitant]
     Dosage: 1000 IU, QD
  4. IRON [Concomitant]
     Dosage: 65 MG, QD
  5. IRON [Concomitant]
     Dosage: 2 DF, QOD
  6. MAGNESIUM CHLORIDE [Concomitant]
     Dosage: 6 TIMES A DAY
  7. MULTI-VITAMINS [Concomitant]
  8. BENICAR [Concomitant]
     Dosage: 40 MG, UNK
  9. VIACTIV                                 /CAN/ [Concomitant]
     Dosage: TWICE A DAY
  10. CODEINE [Concomitant]
     Dosage: 30 MG, QID

REACTIONS (6)
  - ABASIA [None]
  - ARTHRALGIA [None]
  - MUSCULOSKELETAL PAIN [None]
  - OEDEMA PERIPHERAL [None]
  - PAIN IN EXTREMITY [None]
  - RHEUMATOID ARTHRITIS [None]
